FAERS Safety Report 15012064 (Version 1)
Quarter: 2018Q2

REPORT INFORMATION
  Report Type: Spontaneous
  Country: US (occurrence: US)
  Receive Date: 20180529
  Receipt Date: 20180529
  Transmission Date: 20180711
  Serious: Yes (Other)
  Sender: FDA-Public Use
  Company Number: None

PATIENT
  Age: 58 Year
  Sex: Male
  Weight: 119.25 kg

DRUGS (2)
  1. VANCOMYCIN [Suspect]
     Active Substance: VANCOMYCIN
     Indication: DIABETIC FOOT
     Route: 042
     Dates: start: 20180427, end: 20180525
  2. VANCOMYCIN [Suspect]
     Active Substance: VANCOMYCIN
     Indication: INFECTED SKIN ULCER
     Route: 042
     Dates: start: 20180427, end: 20180525

REACTIONS (3)
  - Tinnitus [None]
  - Treatment noncompliance [None]
  - Deafness [None]

NARRATIVE: CASE EVENT DATE: 20180523
